FAERS Safety Report 7931576-5 (Version None)
Quarter: 2011Q4

REPORT INFORMATION
  Report Type: 
  Country: None (occurrence: None)
  Receive Date: 20111121
  Receipt Date: 20111121
  Transmission Date: 20120403
  Serious: Yes (Other)
  Sender: FDA-Public Use
  Company Number: None

PATIENT
  Age: 5 Year
  Sex: Male
  Weight: 23.586 kg

DRUGS (1)
  1. INTUNIV [Suspect]
     Indication: ATTENTION DEFICIT/HYPERACTIVITY DISORDER
     Dosage: 1 MG
     Route: 048
     Dates: start: 20111120, end: 20111120

REACTIONS (5)
  - ASTHENIA [None]
  - UNRESPONSIVE TO STIMULI [None]
  - BLOOD PRESSURE DECREASED [None]
  - FEELING ABNORMAL [None]
  - SEDATION [None]
